FAERS Safety Report 4457385-X (Version None)
Quarter: 2004Q3

REPORT INFORMATION
  Report Type: 
  Country: None (occurrence: None)
  Receive Date: 20040922
  Receipt Date: 20040907
  Transmission Date: 20050211
  Serious: Yes (Death, Other)
  Sender: FDA-Public Use
  Company Number: USA040977678

PATIENT
  Age: 24 Year
  Sex: Female

DRUGS (3)
  1. SYMBYAX [Suspect]
     Indication: BIPOLAR I DISORDER
  2. HYDROCODONE [Concomitant]
  3. MORPHINE [Concomitant]

REACTIONS (6)
  - ADVERSE DRUG REACTION [None]
  - CARDIO-RESPIRATORY ARREST [None]
  - CONDITION AGGRAVATED [None]
  - DEPRESSION [None]
  - OVERDOSE [None]
  - TONSILLECTOMY [None]
